FAERS Safety Report 8581639-9 (Version None)
Quarter: 2012Q3

REPORT INFORMATION
  Report Type: 
  Country: None (occurrence: None)
  Receive Date: 20120801
  Receipt Date: 20120801
  Transmission Date: 20120928
  Serious: Yes (Other)
  Sender: FDA-Public Use
  Company Number: None

PATIENT
  Sex: Female

DRUGS (3)
  1. LIPITOR [Suspect]
  2. METFORMIN HYDROCHLORIDE [Concomitant]
  3. LOSARTAN POTASSIUM [Suspect]
     Indication: HYPERTENSION
     Dosage: 50MG ONCE A DAY PO
     Route: 048
     Dates: start: 20120401, end: 20120727

REACTIONS (1)
  - ALOPECIA [None]
